FAERS Safety Report 7571251-2 (Version None)
Quarter: 2011Q2

REPORT INFORMATION
  Report Type: 
  Country: None (occurrence: None)
  Receive Date: 20110624
  Receipt Date: 20110617
  Transmission Date: 20111010
  Serious: Yes (Hospitalization)
  Sender: FDA-Public Use
  Company Number: A0932541A

PATIENT
  Age: 45 Year
  Sex: Male

DRUGS (1)
  1. ZIAGEN [Suspect]
     Route: 065
     Dates: end: 20110617

REACTIONS (2)
  - ANGINA PECTORIS [None]
  - CARDIAC STRESS TEST ABNORMAL [None]
